FAERS Safety Report 8309077-4 (Version None)
Quarter: 2012Q2

REPORT INFORMATION
  Report Type: 
  Country: None (occurrence: None)
  Receive Date: 20120424
  Receipt Date: 20120416
  Transmission Date: 20120825
  Serious: Yes (Other)
  Sender: FDA-Public Use
  Company Number: CA-ROCHE-1061911

PATIENT
  Sex: Male

DRUGS (5)
  1. FLOVENT [Concomitant]
  2. VENTOLIN [Concomitant]
  3. OMALIZUMAB [Suspect]
     Indication: ASTHMA
     Route: 058
     Dates: start: 20110927
  4. ATROVENT [Concomitant]
  5. PREDNISONE TAB [Concomitant]

REACTIONS (4)
  - OROPHARYNGEAL PAIN [None]
  - HAEMATOCHEZIA [None]
  - COUGH [None]
  - MYALGIA [None]
